FAERS Safety Report 8500439-9 (Version None)
Quarter: 2012Q3

REPORT INFORMATION
  Report Type: 
  Country: None (occurrence: None)
  Receive Date: 20120710
  Receipt Date: 20120514
  Transmission Date: 20120928
  Serious: Yes (Death, Hospitalization)
  Sender: FDA-Public Use
  Company Number: JP-GLAXOSMITHKLINE-B0761703A

PATIENT
  Sex: Female

DRUGS (7)
  1. NEUTROGIN [Concomitant]
     Indication: FEBRILE NEUTROPENIA
     Dosage: 200MCG PER DAY
     Route: 058
     Dates: start: 20110923, end: 20110927
  2. DEXAMETHASONE SODIUM PHOSPHATE [Concomitant]
     Indication: PROPHYLAXIS OF NAUSEA AND VOMITING
     Dosage: 3.3MG PER DAY
     Route: 042
     Dates: start: 20110912, end: 20110916
  3. MAXIPIME [Concomitant]
     Indication: INFECTION PROPHYLAXIS
     Dosage: 2G PER DAY
     Route: 042
     Dates: start: 20110923, end: 20110927
  4. LOXOPROFEN SODIUM [Concomitant]
     Indication: BACK PAIN
     Dosage: 180MG PER DAY
     Route: 048
     Dates: start: 20110912
  5. HYCAMTIN [Suspect]
     Indication: OVARIAN CANCER RECURRENT
     Dosage: 9MG PER DAY
     Route: 042
     Dates: start: 20110912, end: 20110916
  6. FAMOTIDINE [Concomitant]
     Indication: GASTRITIS PROPHYLAXIS
     Dosage: 40MG PER DAY
     Route: 048
     Dates: start: 20110912
  7. SELTOUCH [Concomitant]
     Indication: BACK PAIN
     Dosage: 140MG PER DAY
     Route: 062
     Dates: start: 20110901

REACTIONS (3)
  - INTERSTITIAL LUNG DISEASE [None]
  - FEBRILE NEUTROPENIA [None]
  - PANCYTOPENIA [None]
